FAERS Safety Report 17691995 (Version 5)
Quarter: 2020Q3

REPORT INFORMATION
  Report Type: Spontaneous
  Country: US (occurrence: US)
  Receive Date: 20200422
  Receipt Date: 20200813
  Transmission Date: 20201102
  Serious: Yes (Death, Other)
  Sender: FDA-Public Use
  Company Number: US-SA-2020SA102384

PATIENT

DRUGS (1)
  1. DUPIXENT [Suspect]
     Active Substance: DUPILUMAB
     Dosage: 2 DF, 1X
     Route: 058
     Dates: start: 20200304, end: 20200304

REACTIONS (4)
  - Dyspnoea [Fatal]
  - Eosinophil count increased [Unknown]
  - Anaphylactic reaction [Fatal]
  - Inflammation [Fatal]

NARRATIVE: CASE EVENT DATE: 20200305
